FAERS Safety Report 5283210-3 (Version None)
Quarter: 2007Q2

REPORT INFORMATION
  Report Type: 
  Country: None (occurrence: None)
  Receive Date: 20070402
  Receipt Date: 20070326
  Transmission Date: 20071010
  Serious: Yes (Life-Threatening, Hospitalization)
  Sender: FDA-Public Use
  Company Number: JP-JPN-A200700833

PATIENT
  Age: 77 Year
  Sex: Female
  Weight: 55 kg

DRUGS (4)
  1. ZANTAC [Suspect]
     Indication: PREMEDICATION
     Dosage: 8ML PER DAY
     Route: 042
     Dates: start: 20070222, end: 20070222
  2. DECADRON [Suspect]
     Indication: PREMEDICATION
     Dosage: 8ML PER DAY
     Route: 065
     Dates: start: 20070222, end: 20070222
  3. RESTAMIN [Suspect]
     Indication: PREMEDICATION
     Dosage: 5TAB PER DAY
     Route: 048
     Dates: start: 20070222, end: 20070227
  4. SOLITA-T NO.3 [Concomitant]
     Indication: PREMEDICATION
     Route: 042
     Dates: start: 20070222, end: 20070222

REACTIONS (8)
  - COLD SWEAT [None]
  - CYANOSIS [None]
  - DEPRESSED LEVEL OF CONSCIOUSNESS [None]
  - HYPOTENSION [None]
  - OXYGEN SATURATION DECREASED [None]
  - PALPITATIONS [None]
  - SHOCK [None]
  - URINARY INCONTINENCE [None]
